FAERS Safety Report 20946644 (Version 2)
Quarter: 2022Q2

REPORT INFORMATION
  Report Type: Report from Study
  Country: MX (occurrence: MX)
  Receive Date: 20220610
  Receipt Date: 20220624
  Transmission Date: 20220721
  Serious: Yes (Other)
  Sender: FDA-Public Use
  Company Number: MX-BRISTOL-MYERS SQUIBB COMPANY-BMS-2022-038939

PATIENT
  Age: 68 Year
  Sex: Male
  Weight: 65 kg

DRUGS (13)
  1. PLACEBO [Suspect]
     Active Substance: UNSPECIFIED INGREDIENT
     Indication: Bladder cancer
     Dosage: 1 DF- 1 TABLET?RECEIVED MOST RECENT DOSE ON 17-DEC-2021 PRIOR TO THE EVENT ONSET.
     Route: 065
     Dates: start: 20211116
  2. NIVOLUMAB [Suspect]
     Active Substance: NIVOLUMAB
     Indication: Bladder cancer
     Dosage: RECEIVED MOST RECENT DOSE ON 19-JAN-2022 PRIOR TO THE EVENT ONSET.
     Route: 042
     Dates: start: 20211116
  3. CISPLATIN [Suspect]
     Active Substance: CISPLATIN
     Indication: Bladder cancer
     Dosage: RECEIVED MOST RECENT DOSE ON 19-JAN-2022 PRIOR TO THE EVENT ONSET.
     Route: 065
     Dates: start: 20211116
  4. GEMCITABINE HYDROCHLORIDE [Suspect]
     Active Substance: GEMCITABINE HYDROCHLORIDE
     Indication: Bladder cancer
     Dosage: RECEIVED MOST RECENT DOSE ON 28-JAN-2022 PRIOR TO THE EVENT ONSET.
     Route: 065
     Dates: start: 20211116
  5. ESCITALOPRAM [Concomitant]
     Active Substance: ESCITALOPRAM OXALATE
     Indication: Product used for unknown indication
     Dosage: ONGOING
     Route: 048
     Dates: start: 20211208
  6. BISOPROLOL [Concomitant]
     Active Substance: BISOPROLOL
     Indication: Product used for unknown indication
     Dosage: ONGOING
     Route: 048
     Dates: start: 20201023
  7. CLONAZEPAM [Concomitant]
     Active Substance: CLONAZEPAM
     Indication: Product used for unknown indication
     Dosage: 1 DF- 3 UNITS NOS?ONGOING
     Route: 048
     Dates: start: 20211023
  8. TELMISARTAN [Concomitant]
     Active Substance: TELMISARTAN
     Indication: Product used for unknown indication
     Dosage: ONGOING
     Route: 048
     Dates: start: 20220120
  9. SENOSIDOS AB [Concomitant]
     Indication: Product used for unknown indication
     Dosage: ONGOING
     Route: 048
     Dates: start: 20211023
  10. OLANZAPINE [Concomitant]
     Active Substance: OLANZAPINE
     Indication: Product used for unknown indication
     Dosage: ONGOING
     Route: 048
     Dates: start: 20220118
  11. BROMAZEPAM [Concomitant]
     Active Substance: BROMAZEPAM
     Indication: Product used for unknown indication
     Dosage: ONGOING
     Route: 048
     Dates: start: 20211023
  12. CEFIXIME [Concomitant]
     Active Substance: CEFIXIME
     Indication: Product used for unknown indication
     Route: 048
     Dates: start: 20220226, end: 20220311
  13. KETOROLAK [Concomitant]
     Indication: Product used for unknown indication
     Route: 048
     Dates: start: 20220226, end: 20220305

REACTIONS (1)
  - Confusional state [Recovered/Resolved with Sequelae]

NARRATIVE: CASE EVENT DATE: 20220311
